FAERS Safety Report 6022724-5 (Version None)
Quarter: 2008Q4

REPORT INFORMATION
  Report Type: 
  Country: None (occurrence: None)
  Receive Date: 20081230
  Receipt Date: 20081218
  Transmission Date: 20090506
  Serious: Yes (Disabling, Other)
  Sender: FDA-Public Use
  Company Number: FR-PFIZER INC-2008079184

PATIENT

DRUGS (3)
  1. SUNITINIB MALATE [Suspect]
     Indication: BREAST CANCER
     Dosage: 37.5 MG, 1X/DAY
     Route: 048
     Dates: start: 20080722, end: 20080820
  2. *CAPECITABINE [Suspect]
     Indication: BREAST CANCER
     Dosage: 1500 MG, 2X/DAY, DAY 1-14 EVERY 3 WEEKS
     Route: 048
     Dates: start: 20080722
  3. ZOLADEX [Concomitant]
     Dates: start: 20020101

REACTIONS (1)
  - RENAL INFARCT [None]
